FAERS Safety Report 15089565 (Version 10)
Quarter: 2023Q4

REPORT INFORMATION
  Report Type: Report from Study
  Country: CA (occurrence: CA)
  Receive Date: 20180629
  Receipt Date: 20231016
  Transmission Date: 20240110
  Serious: Yes (Life-Threatening, Hospitalization)
  Sender: FDA-Public Use
  Company Number: PHHY2018CA003721

PATIENT
  Age: 30 Year
  Sex: Female

DRUGS (15)
  1. COSENTYX [Suspect]
     Active Substance: SECUKINUMAB
     Indication: Psoriatic arthropathy
     Dosage: 300 MG, Q2W
     Route: 058
     Dates: start: 20170216, end: 20171216
  2. COSENTYX [Suspect]
     Active Substance: SECUKINUMAB
     Dosage: 300 MG, UNK
     Route: 058
     Dates: start: 2017
  3. COSENTYX [Suspect]
     Active Substance: SECUKINUMAB
     Dosage: 300 MG, Q2W
     Route: 058
     Dates: start: 20180621, end: 20191114
  4. COSENTYX [Suspect]
     Active Substance: SECUKINUMAB
     Dosage: 300 MG, Q3W
     Route: 058
     Dates: start: 20190503
  5. COSENTYX [Suspect]
     Active Substance: SECUKINUMAB
     Dosage: 300 MG, Q2W
     Route: 058
     Dates: start: 20200303
  6. COSENTYX [Suspect]
     Active Substance: SECUKINUMAB
     Dosage: 300 MG, Q2W
     Route: 058
  7. LEFLUNOMIDE [Concomitant]
     Active Substance: LEFLUNOMIDE
     Indication: Psoriatic arthropathy
     Dosage: UNK
     Route: 048
  8. METHOTREXATE [Concomitant]
     Active Substance: METHOTREXATE
     Indication: Psoriatic arthropathy
     Dosage: UNK
     Route: 048
  9. STELARA [Concomitant]
     Active Substance: USTEKINUMAB
     Indication: Product used for unknown indication
     Dosage: UNK
     Route: 065
     Dates: start: 201801, end: 20180511
  10. HUMIRA [Concomitant]
     Active Substance: ADALIMUMAB
     Indication: Psoriatic arthropathy
     Dosage: UNK
     Route: 058
  11. ENBREL [Concomitant]
     Active Substance: ETANERCEPT
     Indication: Psoriatic arthropathy
     Dosage: UNK
     Route: 058
  12. LITHIUM [Concomitant]
     Active Substance: LITHIUM
     Indication: Bipolar disorder
     Dosage: UNK
     Route: 048
  13. LIPITA [Concomitant]
     Indication: Bipolar disorder
     Dosage: UNK
     Route: 048
  14. PREDNISONE [Concomitant]
     Active Substance: PREDNISONE
     Indication: Psoriatic arthropathy
     Dosage: UNK
     Route: 048
  15. PREDNISONE [Concomitant]
     Active Substance: PREDNISONE
     Dosage: UNK
     Route: 065

REACTIONS (21)
  - Suicidal ideation [Unknown]
  - Pain [Recovered/Resolved]
  - Feeling of despair [Unknown]
  - COVID-19 [Unknown]
  - Psoriatic arthropathy [Not Recovered/Not Resolved]
  - Gait disturbance [Unknown]
  - Synovitis [Unknown]
  - Fatigue [Unknown]
  - Joint swelling [Unknown]
  - Pain [Unknown]
  - Discomfort [Unknown]
  - Tenderness [Unknown]
  - Musculoskeletal stiffness [Unknown]
  - Dysstasia [Unknown]
  - Swollen joint count increased [Unknown]
  - Drug ineffective [Unknown]
  - Depression [Unknown]
  - Arthralgia [Unknown]
  - Product use issue [Unknown]
  - Product prescribing error [Unknown]
  - Product storage error [Unknown]

NARRATIVE: CASE EVENT DATE: 20201005
